FAERS Safety Report 8855880 (Version 1)
Quarter: 2012Q4

REPORT INFORMATION
  Report Type: Spontaneous
  Country: US (occurrence: None)
  Receive Date: 20121022
  Receipt Date: 20121022
  Transmission Date: 20130627
  Serious: Yes (Hospitalization)
  Sender: FDA-Public Use
  Company Number: None

PATIENT
  Age: 76 Year
  Sex: Female
  Weight: 84 kg

DRUGS (1)
  1. IMIPENEM AND CILASTATIN [Suspect]
     Indication: PERITONITIS
     Route: 042
     Dates: start: 20120910, end: 20120918

REACTIONS (2)
  - Convulsion [None]
  - Convulsive threshold lowered [None]
